FAERS Safety Report 9690534 (Version 1)
Quarter: 2013Q4

REPORT INFORMATION
  Report Type: Spontaneous
  Country: US (occurrence: None)
  Receive Date: 20131114
  Receipt Date: 20131114
  Transmission Date: 20140711
  Serious: Yes (Other)
  Sender: FDA-Public Use
  Company Number: None

PATIENT
  Age: 26 Year
  Sex: Female
  Weight: 151.05 kg

DRUGS (1)
  1. ZIRGAN [Suspect]
     Indication: ADENOVIRAL CONJUNCTIVITIS
     Dosage: 1 DROP FOUR TIMES DAILY INTO THE EYE?4-5 WEEKS UNTIL VIRUS GONE

REACTIONS (2)
  - Hypersensitivity [None]
  - Exposure via partner [None]
